FAERS Safety Report 20445062 (Version 1)
Quarter: 2022Q1

REPORT INFORMATION
  Report Type: Spontaneous
  Country: US (occurrence: US)
  Receive Date: 20220208
  Receipt Date: 20220208
  Transmission Date: 20220423
  Serious: No
  Sender: FDA-Public Use
  Company Number: US-PFIZER INC-202101587471

PATIENT
  Age: 80 Year
  Sex: Female

DRUGS (1)
  1. IBRANCE [Suspect]
     Active Substance: PALBOCICLIB
     Dosage: 125 MG, CYCLIC (HELD THE DOSE FOR 14 DAYS, INSTEAD OF THE LABELED 7 DAYS)
     Dates: start: 20210926

REACTIONS (1)
  - White blood cell count decreased [Recovered/Resolved]
